FAERS Safety Report 17440801 (Version 1)
Quarter: 2020Q1

REPORT INFORMATION
  Report Type: Spontaneous
  Country: US (occurrence: US)
  Receive Date: 20200220
  Receipt Date: 20200220
  Transmission Date: 20200409
  Serious: Yes (Life-Threatening, Hospitalization)
  Sender: FDA-Public Use
  Company Number: None

PATIENT
  Age: 79 Year
  Sex: Female
  Weight: 79.3 kg

DRUGS (1)
  1. HEPARIN SODIUM INJECTION [Suspect]
     Active Substance: HEPARIN SODIUM
     Indication: PERCUTANEOUS CORONARY INTERVENTION
     Dosage: ?          OTHER FREQUENCY:PRN ACT;?
     Route: 040
     Dates: start: 20200214, end: 20200214

REACTIONS (2)
  - Coagulation time shortened [None]
  - Vascular stent thrombosis [None]

NARRATIVE: CASE EVENT DATE: 20190214
